FAERS Safety Report 5634583-0 (Version None)
Quarter: 2008Q1

REPORT INFORMATION
  Report Type: 
  Country: None (occurrence: None)
  Receive Date: 20080131
  Receipt Date: 20071107
  Transmission Date: 20080703
  Serious: No
  Sender: FDA-Public Use
  Company Number: 2007-US-000253

PATIENT
  Age: 8 Year
  Sex: Male
  Weight: 17.6 kg

DRUGS (1)
  1. INCRELEX [Suspect]
     Indication: INSULIN-LIKE GROWTH FACTOR DECREASED
     Dosage: 0.7 MG, BID, SUBCUTANEOUS
     Route: 058
     Dates: start: 20070730

REACTIONS (1)
  - INCREASED APPETITE [None]
